FAERS Safety Report 7426007-8 (Version None)
Quarter: 2011Q2

REPORT INFORMATION
  Report Type: 
  Country: None (occurrence: None)
  Receive Date: 20110420
  Receipt Date: 20101020
  Transmission Date: 20111010
  Serious: Yes (Hospitalization, Other)
  Sender: FDA-Public Use
  Company Number: US-BAYER-201028096NA

PATIENT
  Age: 40 Year
  Sex: Female
  Weight: 72.562 kg

DRUGS (3)
  1. CARNITINE HYDROCHLORIDE [Concomitant]
     Dosage: UNK UNK, QD
  2. YASMIN [Suspect]
     Indication: CONTRACEPTION
     Route: 048
     Dates: start: 20020601, end: 20050115
  3. CHROMIUM PICOLINATE [Concomitant]
     Dosage: UNK UNK, QD

REACTIONS (4)
  - PAIN IN EXTREMITY [None]
  - VENOUS INSUFFICIENCY [None]
  - OEDEMA PERIPHERAL [None]
  - DEEP VEIN THROMBOSIS [None]
